FAERS Safety Report 13699438 (Version 1)
Quarter: 2017Q2

REPORT INFORMATION
  Report Type: Spontaneous
  Country: US (occurrence: US)
  Receive Date: 20170628
  Receipt Date: 20170628
  Transmission Date: 20170830
  Serious: Yes (Other)
  Sender: FDA-Public Use
  Company Number: US-PHARMACEUTICAL ASSOCIATES, INC.-2022641

PATIENT
  Age: 16 Year
  Sex: Male

DRUGS (9)
  1. RANITIDINE SYRUP (ORAL SOLUTION) [Suspect]
     Active Substance: RANITIDINE
     Route: 048
     Dates: start: 20170607
  2. ONFI [Concomitant]
     Active Substance: CLOBAZAM
     Route: 048
  3. CARBIDOPA AND LEVODOPA [Concomitant]
     Active Substance: CARBIDOPA\LEVODOPA
     Route: 048
  4. TOPIRAMATE. [Concomitant]
     Active Substance: TOPIRAMATE
     Route: 048
  5. LEVETIRACETAM. [Concomitant]
     Active Substance: LEVETIRACETAM
     Route: 048
  6. LORAZEPAM. [Concomitant]
     Active Substance: LORAZEPAM
     Route: 048
  7. PHENOBARBITAL. [Concomitant]
     Active Substance: PHENOBARBITAL
     Route: 048
  8. BACLOFEN. [Concomitant]
     Active Substance: BACLOFEN
     Route: 048
  9. TOPIRAMATE. [Concomitant]
     Active Substance: TOPIRAMATE
     Route: 048

REACTIONS (3)
  - Product colour issue [None]
  - Incorrect product storage [None]
  - Seizure [Unknown]

NARRATIVE: CASE EVENT DATE: 20170607
